FAERS Safety Report 7879282-X (Version None)
Quarter: 2011Q4

REPORT INFORMATION
  Report Type: 
  Country: None (occurrence: None)
  Receive Date: 20111101
  Receipt Date: 20111021
  Transmission Date: 20120403
  Serious: Yes (Other)
  Sender: FDA-Public Use
  Company Number: US-BAYER-2011-074222

PATIENT
  Age: 31 Year
  Sex: Female
  Weight: 54.422 kg

DRUGS (2)
  1. DROSPIRENONE AND ETHINYL ESTRADIOL [Suspect]
     Dosage: UNK
     Dates: start: 20090216, end: 20091023
  2. YASMIN [Suspect]
     Dosage: UNK
     Dates: start: 20090216, end: 20091023

REACTIONS (6)
  - VENOUS INSUFFICIENCY [None]
  - PAIN IN EXTREMITY [None]
  - THROMBOSIS [None]
  - EMOTIONAL DISTRESS [None]
  - OEDEMA PERIPHERAL [None]
  - INJURY [None]
